FAERS Safety Report 5135969-3 (Version None)
Quarter: 2006Q4

REPORT INFORMATION
  Report Type: 
  Country: None (occurrence: None)
  Receive Date: 20061020
  Receipt Date: 20061010
  Transmission Date: 20070319
  Serious: Yes (Life-Threatening, Hospitalization)
  Sender: FDA-Public Use
  Company Number: 2006080856

PATIENT
  Age: 72 Year
  Sex: Male
  Weight: 79 kg

DRUGS (11)
  1. CABERGOLINE [Suspect]
     Indication: PARKINSON'S DISEASE
     Dosage: 4  MG (4 MG, 1 IN 1 D), ORAL
     Route: 048
     Dates: start: 20010101, end: 20051012
  2. ASPIRIN [Concomitant]
  3. SELEGILINE (SELEGILINE) [Concomitant]
  4. IMDUR [Concomitant]
  5. FUROSEMIDE [Concomitant]
  6. ODRIK (TRANDOLAPRIL) [Concomitant]
  7. SPIRIX (SPIRONOLACTONE) [Concomitant]
  8. POTASSIUM CHLORIDE [Concomitant]
  9. DIOVAN COMP (HYDROCHLOROTHIAZIDE, VALSARTAN) [Concomitant]
  10. SIMVASTATIN [Concomitant]
  11. PLAVIX [Concomitant]

REACTIONS (10)
  - ACUTE MYOCARDIAL INFARCTION [None]
  - ATRIOVENTRICULAR BLOCK THIRD DEGREE [None]
  - CORONARY ARTERY OCCLUSION [None]
  - DILATATION ATRIAL [None]
  - ELECTROCARDIOGRAM ST SEGMENT ELEVATION [None]
  - PERICARDIAL EFFUSION [None]
  - PERICARDIAL FIBROSIS [None]
  - PERICARDITIS CONSTRICTIVE [None]
  - RIGHT VENTRICULAR FAILURE [None]
  - VENTRICULAR HYPOKINESIA [None]
